FAERS Safety Report 24669062 (Version 1)
Quarter: 2024Q4

REPORT INFORMATION
  Report Type: Spontaneous
  Country: US (occurrence: US)
  Receive Date: 20241127
  Receipt Date: 20241127
  Transmission Date: 20250114
  Serious: No
  Sender: TOLMAR
  Company Number: US-TOLMAR, INC.-24US054108

PATIENT
  Sex: Female

DRUGS (1)
  1. JATENZO [Suspect]
     Active Substance: TESTOSTERONE UNDECANOATE
     Indication: Exposure via partner
     Dosage: 316 MILLIGRAM, BID

REACTIONS (2)
  - Exposure via body fluid [Recovered/Resolved]
  - Blood testosterone free increased [Recovered/Resolved]
